FAERS Safety Report 14343839 (Version 1)
Quarter: 2018Q1

REPORT INFORMATION
  Report Type: Spontaneous
  Country: GB (occurrence: GB)
  Receive Date: 20180102
  Receipt Date: 20180102
  Transmission Date: 20180509
  Serious: Yes (Death, Life-Threatening, Hospitalization)
  Sender: FDA-Public Use
  Company Number: GB-PFIZER INC-2017556040

PATIENT
  Age: 11 Year
  Weight: 23 kg

DRUGS (1)
  1. ANADIN IBUPROFEN [Suspect]
     Active Substance: IBUPROFEN
     Dosage: UNK
     Route: 004

REACTIONS (2)
  - Diarrhoea [Fatal]
  - Incorrect route of drug administration [Unknown]
